FAERS Safety Report 4666082-7 (Version None)
Quarter: 2005Q2

REPORT INFORMATION
  Report Type: 
  Country: None (occurrence: None)
  Receive Date: 20050519
  Receipt Date: 20041203
  Transmission Date: 20051028
  Serious: Yes (Other)
  Sender: FDA-Public Use
  Company Number: GB-GLAXOSMITHKLINE-B0359565A

PATIENT
  Sex: Female

DRUGS (6)
  1. PAROXETINE HCL [Suspect]
     Route: 065
  2. ZOPICLONE [Concomitant]
  3. QUETIAPINE FUMARATE [Concomitant]
  4. PARACETAMOL [Concomitant]
  5. LIBRIUM [Concomitant]
  6. EFFEXOR [Concomitant]

REACTIONS (4)
  - INTENTIONAL MISUSE [None]
  - INTENTIONAL SELF-INJURY [None]
  - OVERDOSE [None]
  - SUICIDE ATTEMPT [None]
